FAERS Safety Report 8874131 (Version 3)
Quarter: 2012Q4

REPORT INFORMATION
  Report Type: 
  Country: JP (occurrence: JP)
  Receive Date: 20121030
  Receipt Date: 20121202
  Transmission Date: 20130627
  Serious: Yes (Hospitalization)
  Sender: FDA-Public Use
  Company Number: JP-009507513-1210JPN011728

PATIENT
  Age: 81 Year
  Sex: Male
  Weight: 50 kg

DRUGS (5)
  1. STROMECTOL [Suspect]
     Indication: ACARODERMATITIS
     Dosage: 3 DF, qd
     Route: 048
     Dates: start: 20121018, end: 20121018
  2. RIVASTIGMINE [Concomitant]
     Dosage: 13.5 mg, qd
     Route: 065
  3. MEMARY [Concomitant]
     Dosage: 5 mg, qd
     Route: 065
  4. LORCAM [Concomitant]
     Dosage: 4 mg, qd
     Route: 065
  5. APLACE [Concomitant]
     Dosage: 100 mg, qd
     Route: 065

REACTIONS (2)
  - Tremor [Recovering/Resolving]
  - Pyrexia [Recovering/Resolving]
